FAERS Safety Report 17393022 (Version 1)
Quarter: 2020Q1

REPORT INFORMATION
  Report Type: Spontaneous
  Country: US (occurrence: US)
  Receive Date: 20200207
  Receipt Date: 20200207
  Transmission Date: 20200409
  Serious: No
  Sender: FDA-Public Use
  Company Number: US-ASTRAZENECA-2020SE14547

PATIENT
  Age: 11 Month
  Weight: 8.9 kg

DRUGS (3)
  1. SYNAGIS [Suspect]
     Active Substance: PALIVIZUMAB
     Indication: RESPIRATORY SYNCYTIAL VIRUS TEST
     Dosage: 100 MG
     Route: 030
     Dates: start: 20200103, end: 20200103
  2. SYNAGIS [Suspect]
     Active Substance: PALIVIZUMAB
     Indication: RESPIRATORY SYNCYTIAL VIRUS TEST
     Dosage: 33 MG ONCE
     Route: 030
     Dates: start: 20200103, end: 20200103
  3. TYLENOL [Concomitant]
     Active Substance: ACETAMINOPHEN

REACTIONS (4)
  - Urticaria [Unknown]
  - Pyrexia [Recovered/Resolved]
  - Rash [Recovered/Resolved]
  - Inappropriate schedule of product administration [Unknown]

NARRATIVE: CASE EVENT DATE: 20200104
